FAERS Safety Report 13009963 (Version 3)
Quarter: 2016Q4

REPORT INFORMATION
  Report Type: Spontaneous
  Country: US (occurrence: US)
  Receive Date: 20161208
  Receipt Date: 20161219
  Transmission Date: 20170207
  Serious: Yes (Hospitalization)
  Sender: FDA-Public Use
  Company Number: US-CELGENEUS-USA-2016121677

PATIENT
  Age: 78 Year
  Sex: Male

DRUGS (4)
  1. POMALYST [Suspect]
     Active Substance: POMALIDOMIDE
     Dosage: 2 MG
     Route: 048
     Dates: start: 20150202
  2. POMALYST [Suspect]
     Active Substance: POMALIDOMIDE
     Dosage: 1-3 MG
     Route: 048
     Dates: start: 201311
  3. POMALYST [Suspect]
     Active Substance: POMALIDOMIDE
     Indication: PLASMA CELL MYELOMA
     Dosage: 4 MG
     Route: 048
     Dates: start: 201307
  4. POMALYST [Suspect]
     Active Substance: POMALIDOMIDE
     Dosage: 3 MG
     Route: 048
     Dates: start: 201512

REACTIONS (1)
  - Gastrointestinal infection [Recovered/Resolved]

NARRATIVE: CASE EVENT DATE: 20161128
